FAERS Safety Report 4369063-6 (Version None)
Quarter: 2004Q2

REPORT INFORMATION
  Report Type: 
  Country: None (occurrence: None)
  Receive Date: 20040527
  Receipt Date: 20040512
  Transmission Date: 20050107
  Serious: Yes (Death)
  Sender: FDA-Public Use
  Company Number: 000868

PATIENT
  Age: 19 Year
  Sex: Female

DRUGS (4)
  1. ZEVALIN THERAPY  .(RITUXIMAB, INDIUM-111-IBRITUMOMAB TIUXETAN, YTTRIUM [Suspect]
     Indication: NON-HODGKIN'S LYMPHOMA
     Dosage: SEE IMAGE
     Route: 042
     Dates: start: 20040201, end: 20040201
  2. ZEVALIN THERAPY  .(RITUXIMAB, INDIUM-111-IBRITUMOMAB TIUXETAN, YTTRIUM [Suspect]
     Indication: NON-HODGKIN'S LYMPHOMA
     Dosage: SEE IMAGE
     Route: 042
     Dates: start: 20040201, end: 20040201
  3. ZEVALIN THERAPY  .(RITUXIMAB, INDIUM-111-IBRITUMOMAB TIUXETAN, YTTRIUM [Suspect]
     Indication: NON-HODGKIN'S LYMPHOMA
     Dosage: SEE IMAGE
     Route: 042
     Dates: start: 20040201, end: 20040201
  4. ZEVALIN THERAPY  .(RITUXIMAB, INDIUM-111-IBRITUMOMAB TIUXETAN, YTTRIUM [Suspect]
     Indication: NON-HODGKIN'S LYMPHOMA
     Dosage: SEE IMAGE
     Route: 042
     Dates: start: 20040201, end: 20040201

REACTIONS (4)
  - BLINDNESS UNILATERAL [None]
  - DEAFNESS [None]
  - HYPOAESTHESIA [None]
  - STEM CELL TRANSPLANT [None]
